FAERS Safety Report 4313284-5 (Version None)
Quarter: 2004Q1

REPORT INFORMATION
  Report Type: 
  Country: None (occurrence: None)
  Receive Date: 20040305
  Receipt Date: 20040305
  Transmission Date: 20041129
  Serious: No
  Sender: FDA-Public Use
  Company Number: None

PATIENT
  Age: 29 Year
  Sex: Male
  Weight: 81.6475 kg

DRUGS (1)
  1. SEROQUEL [Suspect]

REACTIONS (2)
  - PRIAPISM [None]
  - SELF-MEDICATION [None]
